FAERS Safety Report 21472903 (Version 1)
Quarter: 2022Q4

REPORT INFORMATION
  Report Type: Other
  Country: None (occurrence: US)
  Receive Date: 20221018
  Receipt Date: 20221018
  Transmission Date: 20230112
  Serious: Yes (Life-Threatening)
  Sender: FDA-Public Use
  Company Number: US-RIGHT VALUE DRUG STORES, LLC-2133938

PATIENT
  Age: 59 Year
  Sex: Female
  Weight: 65 kg

DRUGS (3)
  1. ESTRADIOL [Suspect]
     Active Substance: ESTRADIOL
     Route: 058
  2. TESTOSTERONE [Suspect]
     Active Substance: TESTOSTERONE
     Route: 058
  3. TESTOSTERONE [Suspect]
     Active Substance: TESTOSTERONE
     Route: 058

REACTIONS (1)
  - Breast cancer stage I [Unknown]

NARRATIVE: CASE EVENT DATE: 20220801
